FAERS Safety Report 6425182-1 (Version None)
Quarter: 2009Q4

REPORT INFORMATION
  Report Type: 
  Country: None (occurrence: None)
  Receive Date: 20091102
  Receipt Date: 20091102
  Transmission Date: 20100525
  Serious: No
  Sender: FDA-Public Use
  Company Number: None

PATIENT
  Age: 34 Year
  Sex: Female
  Weight: 72.5755 kg

DRUGS (1)
  1. CELESTONE [Suspect]
     Indication: SINUSITIS
     Dosage: ONCE OTHER
     Route: 050
     Dates: start: 20090501, end: 20090501

REACTIONS (7)
  - INJECTION SITE DISCOLOURATION [None]
  - INJECTION SITE HAEMATOMA [None]
  - INJECTION SITE REACTION [None]
  - JOINT INJURY [None]
  - MENSTRUATION IRREGULAR [None]
  - NERVE INJURY [None]
  - SKIN DISORDER [None]
